FAERS Safety Report 9241402 (Version 3)
Quarter: 2014Q2

REPORT INFORMATION
  Report Type: Report from Study
  Country: ES (occurrence: ES)
  Receive Date: 20130419
  Receipt Date: 20140630
  Transmission Date: 20141212
  Serious: Yes (Other)
  Sender: FDA-Public Use
  Company Number: ES-BAYER-2012-093134

PATIENT
  Age: 77 Year
  Sex: Male
  Weight: 83 kg

DRUGS (8)
  1. REGORAFENIB [Suspect]
     Indication: COLORECTAL CANCER METASTATIC
     Dosage: 160 MG, QD
     Route: 048
     Dates: start: 20120820, end: 20120903
  2. REGORAFENIB [Suspect]
     Indication: COLORECTAL CANCER METASTATIC
     Dosage: 120 MG, QD
     Route: 048
     Dates: start: 20120917, end: 20121007
  3. OMEPRAZOL [Concomitant]
     Indication: PROPHYLAXIS
     Dosage: 40 MG, QD
     Route: 048
     Dates: start: 20121020
  4. VALSARTAN [Concomitant]
     Indication: HYPERTENSION
     Dosage: 160 MG, QD
     Route: 048
     Dates: start: 1985
  5. TORASEMID [Concomitant]
     Indication: BLADDER DISORDER
     Dosage: 20 MG, QD
     Route: 048
     Dates: start: 200911
  6. FESOTERODINE [Concomitant]
     Indication: BLADDER DISORDER
     Dosage: 8 MG, QD
     Route: 048
     Dates: start: 200911
  7. EPLERENONE [Concomitant]
     Indication: AORTIC DILATATION
     Dosage: UNK UNK, QD
     Route: 048
     Dates: start: 2000
  8. CITALOPRAM [Concomitant]
     Indication: PROPHYLAXIS
     Dosage: UNK UNK, QD
     Route: 048
     Dates: start: 20121020

REACTIONS (1)
  - Hiccups [Recovered/Resolved]
